FAERS Safety Report 5331600-2 (Version None)
Quarter: 2007Q2

REPORT INFORMATION
  Report Type: 
  Country: None (occurrence: None)
  Receive Date: 20070522
  Receipt Date: 20070510
  Transmission Date: 20071010
  Serious: Yes (Death)
  Sender: FDA-Public Use
  Company Number: US-PFIZER INC-2007038693

PATIENT
  Sex: Male
  Weight: 72.3 kg

DRUGS (10)
  1. CHANTIX [Suspect]
  2. ATENOLOL [Concomitant]
  3. AVANDIA [Concomitant]
  4. COZAAR [Concomitant]
  5. GLUCOPHAGE [Concomitant]
  6. LANTUS [Concomitant]
  7. NEXIUM [Concomitant]
  8. NORVASC [Concomitant]
  9. PRAVACHOL [Concomitant]
  10. VIAGRA [Concomitant]

REACTIONS (1)
  - ACUTE MYOCARDIAL INFARCTION [None]
